FAERS Safety Report 14935475 (Version 1)
Quarter: 2018Q2

REPORT INFORMATION
  Report Type: Spontaneous
  Country: US (occurrence: US)
  Receive Date: 20180524
  Receipt Date: 20180524
  Transmission Date: 20180711
  Serious: No
  Sender: FDA-Public Use
  Company Number: US-MYLANLABS-2018M1029784

PATIENT
  Age: 58 Year
  Sex: Female
  Weight: 62.59 kg

DRUGS (1)
  1. ESTRADIOL. [Suspect]
     Active Substance: ESTRADIOL
     Indication: PRODUCT USED FOR UNKNOWN INDICATION
     Dosage: 0.075 ?G, Q2W
     Route: 062

REACTIONS (3)
  - Feeling abnormal [Unknown]
  - Product adhesion issue [Unknown]
  - Hot flush [Unknown]
